FAERS Safety Report 4774357-6 (Version None)
Quarter: 2005Q3

REPORT INFORMATION
  Report Type: 
  Country: None (occurrence: None)
  Receive Date: 20050914
  Receipt Date: 20050126
  Transmission Date: 20060218
  Serious: Yes (Other)
  Sender: FDA-Public Use
  Company Number: 16356

PATIENT
  Age: 39 Year
  Sex: Female

DRUGS (1)
  1. FLUPHENAZINE DECANOATE INJ. USP 125MG/5ML - BEN VENUE LABS, INC. [Suspect]
     Indication: SCHIZOPHRENIA
     Dosage: 75 MG/IM
     Route: 030
     Dates: start: 20050110

REACTIONS (1)
  - DRUG USE FOR UNKNOWN INDICATION [None]
